FAERS Safety Report 11440097 (Version 1)
Quarter: 2015Q3

REPORT INFORMATION
  Report Type: Spontaneous
  Country: US (occurrence: None)
  Receive Date: 20150831
  Receipt Date: 20150831
  Transmission Date: 20151125
  Serious: Yes (Other)
  Sender: FDA-Public Use
  Company Number: None

PATIENT
  Age: 46 Year
  Sex: Female
  Weight: 64.86 kg

DRUGS (3)
  1. EMERGEN-C [Concomitant]
     Active Substance: VITAMINS
  2. DAILY VITAMINS [Concomitant]
  3. TAMIFLU [Suspect]
     Active Substance: OSELTAMIVIR PHOSPHATE
     Indication: INFLUENZA
     Dosage: 1 PILL TWICE DAILY TAKEN BY MOUTH
     Route: 048
     Dates: start: 20150828, end: 20150828

REACTIONS (5)
  - Hypoaesthesia [None]
  - Pain in extremity [None]
  - Arthralgia [None]
  - Peripheral swelling [None]
  - Erythema [None]

NARRATIVE: CASE EVENT DATE: 20150829
